FAERS Safety Report 8083183-4 (Version None)
Quarter: 2012Q1

REPORT INFORMATION
  Report Type: 
  Country: None (occurrence: None)
  Receive Date: 20120127
  Receipt Date: 20110211
  Transmission Date: 20120608
  Serious: No
  Sender: FDA-Public Use
  Company Number: US-ABBOTT-11P-163-0704633-00

PATIENT
  Sex: Male
  Weight: 93.07 kg

DRUGS (2)
  1. OTC ARTHRITIS MEDICATION [Concomitant]
     Indication: RHEUMATOID ARTHRITIS
  2. HUMIRA [Suspect]
     Indication: RHEUMATOID ARTHRITIS
     Route: 058
     Dates: end: 20101201

REACTIONS (8)
  - DECREASED APPETITE [None]
  - PYREXIA [None]
  - ASTHENIA [None]
  - DRUG DOSE OMISSION [None]
  - VOMITING [None]
  - DIARRHOEA [None]
  - WEIGHT DECREASED [None]
  - RHEUMATOID ARTHRITIS [None]
